FAERS Safety Report 24968783 (Version 2)
Quarter: 2025Q1

REPORT INFORMATION
  Report Type: Spontaneous
  Country: IT (occurrence: IT)
  Receive Date: 20250214
  Receipt Date: 20250217
  Transmission Date: 20250409
  Serious: Yes (Life-Threatening, Hospitalization, Other)
  Sender: NOVARTIS
  Company Number: None

PATIENT
  Age: 33 Year
  Sex: Female

DRUGS (1)
  1. OXCARBAZEPINE [Suspect]
     Active Substance: OXCARBAZEPINE
     Indication: Epilepsy
     Dosage: 30000 MG, Q24H (LA PAZIENTE HA ASSUNTO 2 BLISTER DI TOLEP 300 MG)
     Route: 048
     Dates: start: 20240116, end: 20240116

REACTIONS (4)
  - Drug abuse [Recovered/Resolved]
  - Altered state of consciousness [Recovered/Resolved]
  - Vomiting [Recovered/Resolved]
  - Intentional self-injury [Recovered/Resolved]

NARRATIVE: CASE EVENT DATE: 20241016
